FAERS Safety Report 4682455-0 (Version None)
Quarter: 2005Q2

REPORT INFORMATION
  Report Type: 
  Country: None (occurrence: None)
  Receive Date: 20050606
  Receipt Date: 20050510
  Transmission Date: 20051028
  Serious: Yes (Death, Hospitalization)
  Sender: FDA-Public Use
  Company Number: AR-ROCHE-404263

PATIENT
  Age: 72 Year
  Sex: Female
  Weight: 59 kg

DRUGS (5)
  1. CAPECITABINE [Suspect]
     Indication: BREAST CANCER
     Dosage: DOSE EQUATES TO 3000MG.  TWO WEEKS TREATMENT FOLLOWED BY ONE WEEK REST.
     Route: 048
     Dates: start: 20050304
  2. IXABEPILONE [Suspect]
     Indication: BREAST CANCER
     Route: 042
     Dates: start: 20050304
  3. LEVOFLOXACIN [Concomitant]
     Dates: start: 20050415, end: 20050417
  4. PARACETAMOL [Concomitant]
     Dates: start: 20050414
  5. RANITIDINE [Concomitant]
     Dates: start: 20050415

REACTIONS (9)
  - BLOOD CULTURE POSITIVE [None]
  - CARDIO-RESPIRATORY ARREST [None]
  - ENTEROBACTER INFECTION [None]
  - FEBRILE NEUTROPENIA [None]
  - HEART RATE INCREASED [None]
  - PNEUMONIA [None]
  - PNEUMONITIS [None]
  - STOMATITIS [None]
  - WEIGHT DECREASED [None]
